FAERS Safety Report 9450783 (Version 2)
Quarter: 2015Q4

REPORT INFORMATION
  Report Type: Spontaneous
  Country: US (occurrence: US)
  Receive Date: 20130809
  Receipt Date: 20151013
  Transmission Date: 20160305
  Serious: No
  Sender: FDA-Public Use
  Company Number: US-AMGEN-USASP2013032988

PATIENT
  Age: 64 Year
  Sex: Male

DRUGS (9)
  1. NEUPOGEN [Suspect]
     Active Substance: FILGRASTIM
     Indication: WHITE BLOOD CELL COUNT DECREASED
     Dosage: UNK
     Dates: start: 20130427
  2. URSODIOL. [Concomitant]
     Active Substance: URSODIOL
     Dosage: UNK
  3. PREDNISONE. [Concomitant]
     Active Substance: PREDNISONE
     Dosage: UNK
  4. VANCOMYCIN [Concomitant]
     Active Substance: VANCOMYCIN
     Indication: KLEBSIELLA INFECTION
     Dosage: UNK
  5. CENTRUM                            /07499601/ [Concomitant]
     Dosage: UNK
  6. IRON [Concomitant]
     Active Substance: IRON
     Dosage: UNK
  7. TACROLIMUS. [Concomitant]
     Active Substance: TACROLIMUS
     Dosage: UNK
  8. MAGNESIUM OXIDE. [Concomitant]
     Active Substance: MAGNESIUM OXIDE
     Dosage: UNK
  9. NADOLOL. [Concomitant]
     Active Substance: NADOLOL
     Dosage: UNK

REACTIONS (2)
  - Discomfort [Unknown]
  - Spleen disorder [Unknown]

NARRATIVE: CASE EVENT DATE: 20130504
